FAERS Safety Report 9500099 (Version 1)
Quarter: 2013Q1

REPORT INFORMATION
  Report Type: Spontaneous
  Country: US (occurrence: None)
  Receive Date: 20130107
  Receipt Date: 20130107
  Transmission Date: 20140127
  Serious: No
  Sender: FDA-Public Use
  Company Number: PHEH2012US020938

PATIENT
  Age: 71 Year
  Sex: Female
  Weight: 25 kg

DRUGS (4)
  1. GILENYA [Suspect]
     Indication: MULTIPLE SCLEROSIS
     Route: 048
     Dates: start: 20121023
  2. PRILOSEC [Concomitant]
  3. SYNTHROID (LEVOTHYROXINE SODIUM) [Concomitant]
  4. XANAX (ALPRAZOLAM) [Concomitant]

REACTIONS (2)
  - Feeling jittery [None]
  - Peripheral coldness [None]
